FAERS Safety Report 7433658-3 (Version None)
Quarter: 2011Q2

REPORT INFORMATION
  Report Type: 
  Country: None (occurrence: None)
  Receive Date: 20110422
  Receipt Date: 20110414
  Transmission Date: 20111010
  Serious: Yes (Hospitalization, Disabling)
  Sender: FDA-Public Use
  Company Number: US-MERCK-1101USA01769

PATIENT
  Age: 55 Year
  Sex: Female
  Weight: 80 kg

DRUGS (6)
  1. FOSAMAX [Suspect]
     Indication: MENOPAUSE
     Route: 048
     Dates: start: 19970101, end: 20000101
  2. FOSAMAX [Suspect]
     Route: 048
     Dates: start: 20030711, end: 20090101
  3. FOSAMAX [Suspect]
     Route: 048
     Dates: start: 20040901
  4. FOSAMAX [Suspect]
     Indication: OSTEOPOROSIS
     Route: 048
     Dates: start: 19970101, end: 20000101
  5. FOSAMAX [Suspect]
     Route: 048
     Dates: start: 20040901
  6. FOSAMAX [Suspect]
     Route: 048
     Dates: start: 20030711, end: 20090101

REACTIONS (20)
  - INSOMNIA [None]
  - CONNECTIVE TISSUE DISORDER [None]
  - FALL [None]
  - HAEMORRHAGIC ANAEMIA [None]
  - ARTHROPATHY [None]
  - GASTROOESOPHAGEAL REFLUX DISEASE [None]
  - HAEMATURIA [None]
  - BONE PAIN [None]
  - FEMUR FRACTURE [None]
  - CEREBROVASCULAR ACCIDENT [None]
  - DEAFNESS UNILATERAL [None]
  - HERPES ZOSTER [None]
  - OSTEOARTHRITIS [None]
  - COAGULOPATHY [None]
  - CATARACT [None]
  - PAIN IN EXTREMITY [None]
  - CHONDROCALCINOSIS [None]
  - VULVOVAGINAL PRURITUS [None]
  - FATIGUE [None]
  - GAIT DISTURBANCE [None]
